FAERS Safety Report 16705986 (Version 7)
Quarter: 2021Q2

REPORT INFORMATION
  Report Type: Spontaneous
  Country: US (occurrence: US)
  Receive Date: 20190815
  Receipt Date: 20210518
  Transmission Date: 20210716
  Serious: Yes (Life-Threatening, Hospitalization, Other)
  Sender: FDA-Public Use
  Company Number: US-BIOGEN-2019BI00773277

PATIENT
  Age: 49 Year
  Sex: Female

DRUGS (3)
  1. TYSABRI [Suspect]
     Active Substance: NATALIZUMAB
     Indication: MULTIPLE SCLEROSIS
     Route: 065
     Dates: start: 20070827, end: 20200316
  2. TYSABRI [Suspect]
     Active Substance: NATALIZUMAB
     Route: 065
     Dates: start: 2017
  3. JARDIANCE [Concomitant]
     Active Substance: EMPAGLIFLOZIN
     Indication: PRODUCT USED FOR UNKNOWN INDICATION
     Route: 065

REACTIONS (21)
  - Multiple sclerosis [Not Recovered/Not Resolved]
  - Multiple sclerosis relapse [Not Recovered/Not Resolved]
  - Seizure [Not Recovered/Not Resolved]
  - Cardiac discomfort [Recovered/Resolved]
  - Memory impairment [Not Recovered/Not Resolved]
  - Lung disorder [Unknown]
  - Cartilage atrophy [Unknown]
  - Cardiac disorder [Not Recovered/Not Resolved]
  - Aphasia [Recovered/Resolved]
  - Sjogren^s syndrome [Not Recovered/Not Resolved]
  - Feeling of despair [Not Recovered/Not Resolved]
  - Gastrointestinal haemorrhage [Recovered/Resolved]
  - Intervertebral disc space narrowing [Unknown]
  - Latent tuberculosis [Recovered/Resolved]
  - Myocardial infarction [Recovered/Resolved]
  - Anxiety [Recovered/Resolved]
  - Decreased immune responsiveness [Recovered/Resolved]
  - Arterial occlusive disease [Recovered/Resolved]
  - Petit mal epilepsy [Unknown]
  - Appetite disorder [Unknown]
  - Renal cyst [Not Recovered/Not Resolved]

NARRATIVE: CASE EVENT DATE: 20100925
